FAERS Safety Report 4818238-8 (Version None)
Quarter: 2005Q3

REPORT INFORMATION
  Report Type: 
  Country: None (occurrence: None)
  Receive Date: 20050929
  Receipt Date: 20050601
  Transmission Date: 20060218
  Serious: No
  Sender: FDA-Public Use
  Company Number: 05P-163-0301997-00

PATIENT
  Age: 58 Year
  Sex: Female
  Weight: 108 kg

DRUGS (13)
  1. HUMIRA [Suspect]
     Indication: RHEUMATOID ARTHRITIS
     Dosage: 40 MG, 1 IN 2 WK, SUBCUTANEOUS
     Route: 058
     Dates: start: 20041101
  2. CELECOXIB [Concomitant]
  3. LEFLUNOMIDE [Concomitant]
  4. CITALOPRAM HYDROBROMIDE [Concomitant]
  5. BISOPR/HCTZ [Concomitant]
  6. PROGESTERONE [Concomitant]
  7. ESTROGENS CONJUGATED [Concomitant]
  8. LORATADINE [Concomitant]
  9. MULTI-VITAMINS [Concomitant]
  10. VITAMIN B COMPLEX CAP [Concomitant]
  11. CALCIUM WITH VITAMIN D [Concomitant]
  12. IRON [Concomitant]
  13. RANITIDINE HYDROCHLORIDE [Concomitant]

REACTIONS (1)
  - PROCEDURAL COMPLICATION [None]
